FAERS Safety Report 5495184-0 (Version None)
Quarter: 2007Q4

REPORT INFORMATION
  Report Type: 
  Country: None (occurrence: None)
  Receive Date: 20071024
  Receipt Date: 20070709
  Transmission Date: 20080405
  Serious: No
  Sender: FDA-Public Use
  Company Number: US-AMGEN-US232920

PATIENT
  Sex: Male
  Weight: 75.6 kg

DRUGS (8)
  1. VECTIBIX [Suspect]
     Indication: COLORECTAL CANCER
     Route: 042
     Dates: start: 20070625
  2. LISINOPRIL [Concomitant]
     Route: 065
  3. ACIPHEX [Concomitant]
     Route: 065
  4. ATIVAN [Concomitant]
     Route: 065
  5. IMODIUM [Concomitant]
     Route: 065
  6. CREON [Concomitant]
     Route: 065
  7. PREDNISONE [Concomitant]
     Route: 065
  8. VITAMIN CAP [Concomitant]
     Route: 065

REACTIONS (1)
  - DERMATITIS ACNEIFORM [None]
